FAERS Safety Report 23042713 (Version 1)
Quarter: 2023Q4

REPORT INFORMATION
  Report Type: Spontaneous
  Country: RU (occurrence: None)
  Receive Date: 20231009
  Receipt Date: 20231009
  Transmission Date: 20240110
  Serious: Yes (Other)
  Sender: FDA-Public Use
  Company Number: RU-ROCHE-3431726

PATIENT
  Age: 57 Year
  Sex: Female

DRUGS (4)
  1. TRASTUZUMAB [Suspect]
     Active Substance: TRASTUZUMAB
     Indication: Breast cancer
     Dosage: (8 MG/KG LOADING DOSE) ON DAY 1
     Route: 065
  2. PERTUZUMAB [Suspect]
     Active Substance: PERTUZUMAB
     Indication: Breast cancer
     Dosage: (840 MG LOADING DOSE) ON DAY 1 OF A 21-DAY CYCLE
     Route: 065
  3. ANASTROZOLE [Suspect]
     Active Substance: ANASTROZOLE
     Indication: Breast cancer
     Route: 065
  4. DOCETAXEL [Suspect]
     Active Substance: DOCETAXEL
     Indication: Breast cancer
     Dosage: 75-100 MG/M2 ON DAY 1
     Route: 065

REACTIONS (8)
  - Brain oedema [Unknown]
  - Metastases to central nervous system [Unknown]
  - Invasive breast carcinoma [Unknown]
  - Leukopenia [Unknown]
  - Neuropathy peripheral [Unknown]
  - Gastrointestinal toxicity [Unknown]
  - Asthenia [Unknown]
  - Anaemia [Unknown]
